FAERS Safety Report 8965495 (Version 1)
Quarter: 2012Q4

REPORT INFORMATION
  Report Type: 
  Country: US (occurrence: US)
  Receive Date: 20121213
  Receipt Date: 20121213
  Transmission Date: 20130627
  Serious: Yes (Death, Hospitalization, Other)
  Sender: FDA-Public Use
  Company Number: US-ASTELLAS-2012US012103

PATIENT
  Age: 64 Year
  Sex: Male

DRUGS (4)
  1. TARCEVA [Suspect]
     Indication: PRODUCT USED FOR UNKNOWN INDICATION
     Dosage: UNK
     Route: 048
  2. CAPECITABINE [Concomitant]
     Indication: PRODUCT USED FOR UNKNOWN INDICATION
     Dosage: UNK
     Route: 065
  3. GEMZAR [Concomitant]
     Indication: PRODUCT USED FOR UNKNOWN INDICATION
     Dosage: UNK
     Route: 065
  4. FOLFOX-4 [Concomitant]
     Indication: PRODUCT USED FOR UNKNOWN INDICATION
     Dosage: UNK
     Route: 065

REACTIONS (9)
  - Respiratory failure [Fatal]
  - Asthenia [Fatal]
  - Abdominal pain [Fatal]
  - International normalised ratio abnormal [Unknown]
  - Malignant neoplasm progression [Fatal]
  - Pancreatic carcinoma metastatic [Fatal]
  - Decreased appetite [Unknown]
  - Weight decreased [Unknown]
  - Ascites [Unknown]
